FAERS Safety Report 8138425-3 (Version None)
Quarter: 2012Q1

REPORT INFORMATION
  Report Type: 
  Country: None (occurrence: None)
  Receive Date: 20120215
  Receipt Date: 20120210
  Transmission Date: 20120608
  Serious: Yes (Other)
  Sender: FDA-Public Use
  Company Number: US-B.I. PHARMACEUTICALS,INC./RIDGEFIELD-2012-BP-02790BP

PATIENT
  Sex: Female

DRUGS (12)
  1. EFFEXOR XR [Concomitant]
  2. CELEBREX [Concomitant]
  3. ROPINIROLE [Concomitant]
  4. PLAVIX [Concomitant]
  5. EFFEXOR XR [Concomitant]
  6. CLONAZEPAM [Concomitant]
  7. COMBIVENT [Suspect]
  8. SIMVASTATIN [Concomitant]
  9. LOSARTAN POTASSIUM AND HYDROCHLOROTHIAZIDE [Concomitant]
  10. NASONEX SPR [Concomitant]
  11. ACIPHEX [Concomitant]
  12. FLOVENT HFA [Concomitant]

REACTIONS (1)
  - CEREBROVASCULAR ACCIDENT [None]
